FAERS Safety Report 21706602 (Version 1)
Quarter: 2022Q4

REPORT INFORMATION
  Report Type: Spontaneous
  Country: CH (occurrence: CH)
  Receive Date: 20221209
  Receipt Date: 20221209
  Transmission Date: 20230113
  Serious: Yes (Death)
  Sender: FDA-Public Use
  Company Number: CH-NAPPMUNDI-GBR-2022-0103587

PATIENT
  Age: 41 Year
  Sex: Female
  Weight: 61.5 kg

DRUGS (8)
  1. PALLADONE [Interacting]
     Active Substance: HYDROMORPHONE HYDROCHLORIDE
     Indication: Product dispensing error
     Dosage: UNK
     Route: 042
     Dates: start: 20221016, end: 20221016
  2. FENTANYL [Interacting]
     Active Substance: FENTANYL
     Indication: Analgesic therapy
     Dosage: AS NECESSARY
     Route: 065
     Dates: start: 20221014, end: 20221016
  3. FENTANYL [Interacting]
     Active Substance: FENTANYL
     Dosage: UNK
     Route: 065
     Dates: start: 20221014, end: 20221016
  4. ONDANSETRON [Concomitant]
     Active Substance: ONDANSETRON
     Indication: Vomiting
     Dosage: UNK
     Dates: start: 20221014, end: 20221016
  5. ENOXAPARIN SODIUM [Concomitant]
     Active Substance: ENOXAPARIN SODIUM
     Indication: Anticoagulant therapy
     Dosage: UNK
     Dates: start: 20221014, end: 20221016
  6. DEXAMETHASONE [Concomitant]
     Active Substance: DEXAMETHASONE
     Indication: Ileus
     Dosage: UNK
     Dates: start: 20221014, end: 20221016
  7. HALDOL [Concomitant]
     Active Substance: HALOPERIDOL
     Indication: Ileus
     Dosage: UNK
     Dates: start: 20221014, end: 20221016
  8. OCTREOTIDE [Concomitant]
     Active Substance: OCTREOTIDE
     Indication: Ileus
     Dosage: UNK
     Dates: start: 20221014, end: 20221016

REACTIONS (2)
  - Death [Fatal]
  - Coma [Fatal]

NARRATIVE: CASE EVENT DATE: 20221016
